FAERS Safety Report 6857166-3 (Version None)
Quarter: 2010Q3

REPORT INFORMATION
  Report Type: 
  Country: None (occurrence: None)
  Receive Date: 20100719
  Receipt Date: 20100211
  Transmission Date: 20110219
  Serious: No
  Sender: FDA-Public Use
  Company Number: US-KINGPHARMUSA00001-K201000170

PATIENT
  Sex: Female

DRUGS (2)
  1. LEVOXYL [Suspect]
     Dosage: 112 MCG, MONDAY-SATURDAY, 1/2 TAB QD SUNDAY
     Route: 048
  2. ALBUTEROL [Concomitant]
     Dosage: UNK

REACTIONS (5)
  - CHEST DISCOMFORT [None]
  - DRUG INEFFECTIVE [None]
  - FATIGUE [None]
  - FEELING ABNORMAL [None]
  - INSOMNIA [None]
